FAERS Safety Report 21206887 (Version 1)
Quarter: 2022Q3

REPORT INFORMATION
  Report Type: Spontaneous
  Country: US (occurrence: US)
  Receive Date: 20220812
  Receipt Date: 20220812
  Transmission Date: 20221027
  Serious: Yes (Other)
  Sender: FDA-Public Use
  Company Number: US-AMGEN-USASP2022136576

PATIENT
  Age: 60 Year
  Sex: Female

DRUGS (1)
  1. ENBREL [Suspect]
     Active Substance: ETANERCEPT
     Indication: Rheumatoid arthritis
     Dosage: 50 MILLIGRAM, QWK
     Route: 058

REACTIONS (5)
  - Rheumatoid arthritis [Unknown]
  - Drug ineffective [Unknown]
  - Device difficult to use [Unknown]
  - Product dose omission issue [Unknown]
  - Injection site irritation [Unknown]

NARRATIVE: CASE EVENT DATE: 20220726
